FAERS Safety Report 8517772-7 (Version None)
Quarter: 2012Q3

REPORT INFORMATION
  Report Type: 
  Country: None (occurrence: None)
  Receive Date: 20120718
  Receipt Date: 20120711
  Transmission Date: 20120928
  Serious: Yes (Hospitalization)
  Sender: FDA-Public Use
  Company Number: JP-JNJFOC-20120602568

PATIENT
  Age: 8 Decade
  Sex: Female

DRUGS (7)
  1. TRAMADOL HCL [Suspect]
     Indication: PAIN
     Dosage: 1 PER DAY
     Route: 048
     Dates: start: 20120524
  2. PRIMPERAN TAB [Concomitant]
     Indication: NAUSEA
     Route: 065
  3. MICAMLO [Concomitant]
     Indication: HYPERTENSION
     Route: 048
  4. NEUTROGIN [Concomitant]
     Route: 065
  5. TRAMADOL HCL [Suspect]
     Dosage: 1 PER DAY
     Route: 048
     Dates: start: 20120511, end: 20120523
  6. NEUROTROPIN [Concomitant]
     Indication: PAIN
     Route: 065
  7. TRAMADOL HCL [Suspect]
     Dosage: 1 PER DAY
     Route: 048
     Dates: start: 20120510, end: 20120510

REACTIONS (4)
  - HYPOAESTHESIA [None]
  - DEHYDRATION [None]
  - NAUSEA [None]
  - TREMOR [None]
